FAERS Safety Report 7313404-4 (Version None)
Quarter: 2011Q1

REPORT INFORMATION
  Report Type: 
  Country: None (occurrence: None)
  Receive Date: 20110225
  Receipt Date: 20110217
  Transmission Date: 20110831
  Serious: No
  Sender: FDA-Public Use
  Company Number: US-PFIZER INC-2011036535

PATIENT

DRUGS (1)
  1. EFFEXOR XR [Suspect]
     Dosage: 75 MG, UNK

REACTIONS (5)
  - DRUG WITHDRAWAL SYNDROME [None]
  - BLOOD PRESSURE INCREASED [None]
  - PARAESTHESIA [None]
  - MUSCLE TWITCHING [None]
  - DIZZINESS [None]
